FAERS Safety Report 6419024-8 (Version None)
Quarter: 2009Q4

REPORT INFORMATION
  Report Type: 
  Country: None (occurrence: None)
  Receive Date: 20091028
  Receipt Date: 20091028
  Transmission Date: 20100525
  Serious: Yes (Other)
  Sender: FDA-Public Use
  Company Number: None

PATIENT
  Age: 52 Year
  Sex: Female
  Weight: 56.6996 kg

DRUGS (1)
  1. KENALOG [Suspect]
     Indication: ECZEMA
     Dates: start: 20090730, end: 20090730

REACTIONS (1)
  - CONTUSION [None]
